FAERS Safety Report 5474959-8 (Version None)
Quarter: 2007Q4

REPORT INFORMATION
  Report Type: 
  Country: None (occurrence: None)
  Receive Date: 20071002
  Receipt Date: 20070921
  Transmission Date: 20080405
  Serious: Yes (Other)
  Sender: FDA-Public Use
  Company Number: US-ROCHE-513477

PATIENT
  Age: 61 Year
  Sex: Female
  Weight: 54.4 kg

DRUGS (1)
  1. BONIVA [Suspect]
     Indication: OSTEOPOROSIS
     Route: 065
     Dates: start: 20061201, end: 20070802

REACTIONS (3)
  - ARTHRALGIA [None]
  - HYPOTHYROIDISM [None]
  - MYALGIA [None]
